FAERS Safety Report 7522982-1 (Version None)
Quarter: 2011Q2

REPORT INFORMATION
  Report Type: 
  Country: None (occurrence: None)
  Receive Date: 20110525
  Receipt Date: 20110513
  Transmission Date: 20111010
  Serious: Yes (Death)
  Sender: FDA-Public Use
  Company Number: 2011SP011952

PATIENT
  Age: 49 Year
  Sex: Male
  Weight: 100.5 kg

DRUGS (6)
  1. TYLENOL-500 [Concomitant]
  2. ZOFRAN [Concomitant]
  3. KEPPRA [Concomitant]
  4. TEMODAR [Suspect]
     Indication: GLIOMA
     Dosage: 200 MG/M2' 150 MG/M2
     Dates: start: 20100406, end: 20100609
  5. TEMODAR [Suspect]
     Indication: GLIOMA
     Dosage: 200 MG/M2' 150 MG/M2
     Dates: start: 20100708, end: 20110218
  6. DOCUSATE SODIUM [Concomitant]

REACTIONS (3)
  - EPILEPSY [None]
  - SUDDEN DEATH [None]
  - ANTICONVULSANT DRUG LEVEL DECREASED [None]
